FAERS Safety Report 20621524 (Version 1)
Quarter: 2022Q1

REPORT INFORMATION
  Report Type: Spontaneous
  Country: US (occurrence: US)
  Receive Date: 20220322
  Receipt Date: 20220322
  Transmission Date: 20220423
  Serious: No
  Sender: FDA-Public Use
  Company Number: US-ALLERGAN-2128914US

PATIENT
  Sex: Male

DRUGS (5)
  1. LUMIGAN [Suspect]
     Active Substance: BIMATOPROST
     Indication: Glaucoma
     Dosage: 2 GTT, QHS
     Route: 047
  2. VITAMINS [Concomitant]
     Active Substance: VITAMINS
  3. IRON [Concomitant]
     Active Substance: IRON
  4. ZINC [Concomitant]
     Active Substance: ZINC
  5. VITAMIN C [Concomitant]
     Active Substance: ASCORBIC ACID

REACTIONS (3)
  - Eye irritation [Not Recovered/Not Resolved]
  - Vision blurred [Unknown]
  - Product quality issue [Unknown]
